FAERS Safety Report 7751448-9 (Version None)
Quarter: 2011Q3

REPORT INFORMATION
  Report Type: 
  Country: None (occurrence: None)
  Receive Date: 20110914
  Receipt Date: 20110906
  Transmission Date: 20111222
  Serious: Yes (Hospitalization, Other)
  Sender: FDA-Public Use
  Company Number: PHHY2011AU80255

PATIENT
  Sex: Female

DRUGS (1)
  1. ZOLEDRONOC ACID [Suspect]
     Dosage: 5 MG, UNK
     Route: 042
     Dates: start: 20100810

REACTIONS (5)
  - HIP FRACTURE [None]
  - BACK PAIN [None]
  - NECK PAIN [None]
  - ARTHRALGIA [None]
  - DYSKINESIA [None]
